FAERS Safety Report 16212505 (Version 1)
Quarter: 2019Q2

REPORT INFORMATION
  Report Type: Spontaneous
  Country: TR (occurrence: TR)
  Receive Date: 20190418
  Receipt Date: 20190418
  Transmission Date: 20190711
  Serious: Yes (Hospitalization, Other)
  Sender: FDA-Public Use
  Company Number: TR-ABBVIE-19S-161-2745071-00

PATIENT
  Age: 55 Year
  Sex: Male

DRUGS (1)
  1. DUODOPA [Suspect]
     Active Substance: CARBIDOPA\LEVODOPA
     Indication: PARKINSON^S DISEASE
     Dosage: 3504 MG/DAY
     Route: 050

REACTIONS (13)
  - Hypoaesthesia [Recovering/Resolving]
  - Hallucination [Unknown]
  - Somnolence [Unknown]
  - Blood homocysteine increased [Unknown]
  - Upper respiratory tract infection [Unknown]
  - Muscular weakness [Recovering/Resolving]
  - Guillain-Barre syndrome [Unknown]
  - Agitation [Unknown]
  - Vitamin B12 deficiency [Recovered/Resolved]
  - Encephalopathy [Recovered/Resolved]
  - Acute polyneuropathy [Unknown]
  - Vitamin B6 deficiency [Recovered/Resolved]
  - Vitamin B1 deficiency [Recovered/Resolved]

NARRATIVE: CASE EVENT DATE: 201903
